FAERS Safety Report 21018526 (Version 9)
Quarter: 2025Q1

REPORT INFORMATION
  Report Type: Spontaneous
  Country: US (occurrence: US)
  Receive Date: 20220628
  Receipt Date: 20250131
  Transmission Date: 20250408
  Serious: No
  Sender: PFIZER
  Company Number: US-PFIZER INC-PV202200010594

PATIENT
  Age: 48 Year
  Sex: Female
  Weight: 135.87 kg

DRUGS (10)
  1. IBRANCE [Suspect]
     Active Substance: PALBOCICLIB
     Indication: Breast cancer female
     Route: 048
     Dates: start: 20220610
  2. IBRANCE [Suspect]
     Active Substance: PALBOCICLIB
     Indication: Breast cancer stage IV
     Route: 048
     Dates: start: 20221005
  3. IBRANCE [Suspect]
     Active Substance: PALBOCICLIB
     Indication: Breast cancer metastatic
     Dates: start: 20221130, end: 20240425
  4. IBRANCE [Suspect]
     Active Substance: PALBOCICLIB
     Indication: HER2 negative breast cancer
  5. ANASTROZOLE [Concomitant]
     Active Substance: ANASTROZOLE
     Dosage: 1 MG, 1X/DAY
     Route: 048
  6. FERROUS SULFATE [Concomitant]
     Active Substance: FERROUS SULFATE
     Dosage: UNK, DAILY
  7. FASLODEX [Concomitant]
     Active Substance: FULVESTRANT
  8. FULVESTRANT [Concomitant]
     Active Substance: FULVESTRANT
     Route: 030
  9. ZOMETA [Concomitant]
     Active Substance: ZOLEDRONIC ACID
  10. INAVOLISIB [Concomitant]
     Active Substance: INAVOLISIB
     Dosage: 9 MG, 1X/DAY (D1 - D28)
     Route: 048

REACTIONS (9)
  - Neoplasm progression [Unknown]
  - Hot flush [Unknown]
  - Haemoglobin decreased [Unknown]
  - White blood cell count decreased [Unknown]
  - Alopecia [Unknown]
  - Platelet count decreased [Unknown]
  - Viral infection [Unknown]
  - Neutrophil count decreased [Unknown]
  - Upper respiratory tract infection [Unknown]

NARRATIVE: CASE EVENT DATE: 20220101
